FAERS Safety Report 6022704-X (Version None)
Quarter: 2008Q4

REPORT INFORMATION
  Report Type: 
  Country: None (occurrence: None)
  Receive Date: 20081230
  Receipt Date: 20081120
  Transmission Date: 20090506
  Serious: Yes (Hospitalization)
  Sender: FDA-Public Use
  Company Number: US-BRISTOL-MYERS SQUIBB COMPANY-14378913

PATIENT
  Age: 25 Year
  Sex: Male
  Weight: 71 kg

DRUGS (12)
  1. SPRYCEL [Suspect]
     Indication: CHRONIC MYELOID LEUKAEMIA
     Dosage: 70MGPER DAY FROM 28FEB08; CHANGED FROM 50MG BID ON 18APR08; AND 70MG BID FROM 12SEP08
     Route: 048
     Dates: start: 20080228
  2. EFFEXOR [Concomitant]
  3. RISPERDAL [Concomitant]
  4. AMITRIPTYLINE [Concomitant]
  5. LORAZEPAM [Concomitant]
  6. LEXAPRO [Concomitant]
  7. ACYCLOVIR [Concomitant]
  8. FLUCONAZOLE [Concomitant]
  9. COMPAZINE [Concomitant]
  10. CIPRO [Concomitant]
  11. DOXYCYCLINE [Concomitant]
  12. SANTYL [Concomitant]
     Route: 061

REACTIONS (1)
  - BLAST CELL PROLIFERATION [None]
